FAERS Safety Report 7352422-7 (Version None)
Quarter: 2011Q1

REPORT INFORMATION
  Report Type: 
  Country: None (occurrence: None)
  Receive Date: 20110315
  Receipt Date: 20100924
  Transmission Date: 20110831
  Serious: Yes (Hospitalization, Other)
  Sender: FDA-Public Use
  Company Number: US-BAYER-200931344NA

PATIENT
  Sex: Female
  Weight: 61.364 kg

DRUGS (8)
  1. YAZ [Suspect]
     Indication: PREMENSTRUAL SYNDROME
     Dosage: UNK
     Route: 048
     Dates: start: 20060925, end: 20070101
  2. YAZ [Suspect]
     Indication: MENSTRUATION IRREGULAR
  3. YASMIN [Suspect]
     Indication: MENSTRUATION IRREGULAR
  4. YASMIN [Suspect]
     Indication: CONTRACEPTION
  5. YASMIN [Suspect]
     Indication: PREMENSTRUAL SYNDROME
     Dosage: UNK
     Dates: start: 20060424
  6. YAZ [Suspect]
     Indication: CONTRACEPTION
  7. ADVIL LIQUI-GELS [Concomitant]
  8. LAXATIVES [Concomitant]

REACTIONS (10)
  - SUPERIOR SAGITTAL SINUS THROMBOSIS [None]
  - VOMITING [None]
  - TRANSVERSE SINUS THROMBOSIS [None]
  - CEREBRAL HAEMORRHAGE [None]
  - MUSCULAR WEAKNESS [None]
  - NAUSEA [None]
  - HEADACHE [None]
  - CONVULSION [None]
  - HEMIPARESIS [None]
  - CEREBROVASCULAR ACCIDENT [None]
